FAERS Safety Report 8702672 (Version 2)
Quarter: 2013Q4

REPORT INFORMATION
  Report Type: Spontaneous
  Country: US (occurrence: US)
  Receive Date: 20120803
  Receipt Date: 20131101
  Transmission Date: 20140711
  Serious: No
  Sender: FDA-Public Use
  Company Number: US-009507513-1207USA010689

PATIENT
  Sex: Female

DRUGS (13)
  1. ZOCOR [Suspect]
     Route: 048
  2. PENICILLIN G BENZATHINE [Suspect]
  3. MINOCIN [Suspect]
  4. NEOMYCIN SULFATE [Suspect]
  5. LIPITOR [Suspect]
  6. NEOSPORIN (GRAMICIDIN (+) NEOMYCIN SULFATE (+) POLYMYXIN B SULFATE) [Suspect]
  7. CIPRO [Suspect]
  8. CELEBREX [Suspect]
  9. PAMELOR [Suspect]
  10. IODINE [Suspect]
  11. OXSORALEN [Suspect]
  12. GENTAMICIN [Suspect]
  13. MACRODANTIN [Suspect]

REACTIONS (1)
  - Drug hypersensitivity [Unknown]
